FAERS Safety Report 8561921-1 (Version None)
Quarter: 2012Q3

REPORT INFORMATION
  Report Type: 
  Country: None (occurrence: None)
  Receive Date: 20120802
  Receipt Date: 20120706
  Transmission Date: 20120928
  Serious: No
  Sender: FDA-Public Use
  Company Number: US-AMGEN-USASP2011015582

PATIENT
  Age: 60 Year
  Sex: Female
  Weight: 73.878 kg

DRUGS (11)
  1. VICODIN [Concomitant]
     Dosage: UNK UNK, QD
     Route: 048
  2. ENBREL [Suspect]
     Indication: PSORIATIC ARTHROPATHY
     Dosage: 50 MG, QWK
     Route: 058
     Dates: start: 20080611
  3. AMLODIPINE BESYLATE [Concomitant]
     Dosage: 2.5 MG, QD
     Route: 048
  4. CELEBREX [Concomitant]
     Dosage: 200 MG, BID
     Route: 048
  5. TRIAMTERENE AND HYDROCHLOROTHIAZIDE [Concomitant]
     Dosage: UNK UNK, QD
     Route: 048
  6. POTASSIUM [Concomitant]
     Dosage: 99 MG, QD
  7. LYRICA [Concomitant]
     Dosage: 50 MG, UNK
     Route: 048
  8. COZAAR [Concomitant]
     Dosage: 100 MG, QD
     Route: 048
  9. FOLIC ACID [Concomitant]
     Dosage: 1 MG, QD
     Route: 048
  10. METHOTREXATE [Concomitant]
     Dosage: 7.5 MG, QWK
     Route: 048
  11. LISINOPRIL [Concomitant]
     Dosage: UNK UNK, QD
     Route: 048

REACTIONS (6)
  - OSTEOARTHRITIS [None]
  - TENDONITIS [None]
  - UPPER RESPIRATORY TRACT INFECTION [None]
  - ROTATOR CUFF SYNDROME [None]
  - EOSINOPHIL COUNT INCREASED [None]
  - BURSITIS [None]
